FAERS Safety Report 15858979 (Version 1)
Quarter: 2019Q1

REPORT INFORMATION
  Report Type: Report from Study
  Country: CA (occurrence: CA)
  Receive Date: 20190123
  Receipt Date: 20190123
  Transmission Date: 20190417
  Serious: Yes (Other)
  Sender: FDA-Public Use
  Company Number: CA-BRISTOL-MYERS SQUIBB COMPANY-BMS-2019-004665

PATIENT
  Age: 69 Year
  Sex: Male

DRUGS (1)
  1. NIVOLUMAB [Suspect]
     Active Substance: NIVOLUMAB
     Indication: MALIGNANT MELANOMA
     Dosage: 238.5 MG, Q2WK
     Route: 065
     Dates: start: 20181217, end: 20181231

REACTIONS (2)
  - Pulmonary oedema [Unknown]
  - Cough [Unknown]

NARRATIVE: CASE EVENT DATE: 20190114
